FAERS Safety Report 20426977 (Version 1)
Quarter: 2022Q1

REPORT INFORMATION
  Report Type: Report from Study
  Country: US (occurrence: US)
  Receive Date: 20220204
  Receipt Date: 20220204
  Transmission Date: 20220423
  Serious: No
  Sender: FDA-Public Use
  Company Number: US-EXELIXIS-CABO-21042960

PATIENT
  Age: 57 Year
  Sex: Female

DRUGS (2)
  1. CABOMETYX [Suspect]
     Active Substance: CABOZANTINIB S-MALATE
     Indication: Renal cancer
     Dosage: 40 MG, QD (2 X 40 MG)
     Route: 048
     Dates: start: 20210716
  2. OPDIVO [Suspect]
     Active Substance: NIVOLUMAB
     Indication: Renal cancer
     Dosage: UNK

REACTIONS (4)
  - Illness [Unknown]
  - Blood potassium increased [Unknown]
  - Blood sodium decreased [Unknown]
  - Overdose [Unknown]

NARRATIVE: CASE EVENT DATE: 20210716
